FAERS Safety Report 16176436 (Version 1)
Quarter: 2019Q2

REPORT INFORMATION
  Report Type: Spontaneous
  Country: US (occurrence: US)
  Receive Date: 20190409
  Receipt Date: 20190409
  Transmission Date: 20190711
  Serious: No
  Sender: FDA-Public Use
  Company Number: US-GLAXOSMITHKLINE-US2019060477

PATIENT
  Age: 43 Year
  Sex: Female

DRUGS (1)
  1. TRANSDERM SCOP [Suspect]
     Active Substance: SCOPOLAMINE
     Indication: PROCEDURAL NAUSEA
     Dosage: UNK
     Dates: start: 20190327, end: 20190328

REACTIONS (9)
  - Visual impairment [Unknown]
  - Miosis [Unknown]
  - Withdrawal syndrome [Unknown]
  - Cough [Unknown]
  - Feeling abnormal [Unknown]
  - Somnolence [Unknown]
  - Adverse drug reaction [Unknown]
  - Dizziness [Not Recovered/Not Resolved]
  - Drug ineffective [Unknown]

NARRATIVE: CASE EVENT DATE: 20190328
